FAERS Safety Report 21929371 (Version 1)
Quarter: 2023Q1

REPORT INFORMATION
  Report Type: Spontaneous
  Country: US (occurrence: US)
  Receive Date: 20230131
  Receipt Date: 20230131
  Transmission Date: 20230418
  Serious: No
  Sender: FDA-Public Use
  Company Number: US-UCBSA-2022018585

PATIENT
  Age: 17 Year
  Sex: Male

DRUGS (6)
  1. LEVETIRACETAM [Suspect]
     Active Substance: LEVETIRACETAM
     Indication: Cyanosis
     Dosage: UNKNOWN DOSE
  2. LEVETIRACETAM [Suspect]
     Active Substance: LEVETIRACETAM
     Indication: Off label use
  3. CLOBAZAM [Concomitant]
     Active Substance: CLOBAZAM
     Indication: Cyanosis
  4. GABAPENTIN [Concomitant]
     Active Substance: GABAPENTIN
     Indication: Cyanosis
  5. PRIMIDONE [Concomitant]
     Active Substance: PRIMIDONE
     Indication: Cyanosis
  6. VALPROIC ACID [Concomitant]
     Active Substance: VALPROIC ACID
     Indication: Cyanosis

REACTIONS (3)
  - Eye swelling [Unknown]
  - Drug ineffective for unapproved indication [Unknown]
  - Off label use [Unknown]
